FAERS Safety Report 9321274 (Version 3)
Quarter: 2013Q3

REPORT INFORMATION
  Report Type: Report from Study
  Country: US (occurrence: US)
  Receive Date: 20130531
  Receipt Date: 20130709
  Transmission Date: 20140515
  Serious: Yes (Hospitalization)
  Sender: FDA-Public Use
  Company Number: US-PURDUE-USA-2013-0102778

PATIENT
  Age: 52 Year
  Sex: Female

DRUGS (8)
  1. OXYCONTIN (NDA 22-272) [Suspect]
     Indication: BACK PAIN
     Dosage: 30 MG, Q12H
     Route: 048
     Dates: start: 20130409, end: 20130516
  2. OXYCONTIN (NDA 22-272) [Suspect]
     Indication: SCIATICA
     Dosage: 30 MG, HS
     Route: 048
     Dates: start: 20130409, end: 20130516
  3. AMITRIPTYLINE HYDROCHLORIDE [Concomitant]
     Indication: SCIATICA
     Dosage: 25 MG, HS
     Dates: start: 20110831, end: 20130516
  4. AMITRIPTYLINE HYDROCHLORIDE [Concomitant]
     Indication: INSOMNIA
  5. LYRICA [Concomitant]
     Indication: SCIATICA
     Dosage: 150 MG, BID
     Dates: start: 20120919
  6. TRAZODONE [Concomitant]
     Indication: INSOMNIA
     Dosage: 50 MG, HS
     Dates: start: 20110624
  7. SERTRALINE [Suspect]
     Indication: PRODUCT USED FOR UNKNOWN INDICATION
     Dosage: 200 MG, DAILY
  8. PERCOCET                           /00867901/ [Concomitant]
     Indication: PAIN
     Dosage: 5/325MG, 1-2 TABLETS

REACTIONS (16)
  - Urinary tract infection [Recovered/Resolved]
  - Pyelonephritis [Unknown]
  - Back pain [Unknown]
  - Mental status changes [Recovered/Resolved]
  - Fall [Recovered/Resolved]
  - Amnesia [Recovered/Resolved]
  - Anhedonia [Unknown]
  - Asthenia [Unknown]
  - Aggression [Unknown]
  - Hypotension [Unknown]
  - Inappropriate schedule of drug administration [Unknown]
  - Confusional state [Unknown]
  - Somnolence [Unknown]
  - Unevaluable event [Unknown]
  - Hypersomnia [Unknown]
  - Abdominal pain [Unknown]
